APPROVED DRUG PRODUCT: POLYETHYLENE GLYCOL 3350
Active Ingredient: POLYETHYLENE GLYCOL 3350
Strength: 17GM/SCOOPFUL
Dosage Form/Route: FOR SOLUTION;ORAL
Application: A077706 | Product #001
Applicant: NEXGEN PHARMA INC
Approved: Sep 27, 2006 | RLD: No | RS: No | Type: DISCN